FAERS Safety Report 8242771-2 (Version None)
Quarter: 2012Q1

REPORT INFORMATION
  Report Type: 
  Country: None (occurrence: None)
  Receive Date: 20120329
  Receipt Date: 20120321
  Transmission Date: 20120608
  Serious: Yes (Life-Threatening, Hospitalization, Other)
  Sender: FDA-Public Use
  Company Number: US-BAYER-2012-009125

PATIENT
  Age: 25 Year
  Sex: Female
  Weight: 50.794 kg

DRUGS (5)
  1. YAZ [Suspect]
     Indication: MENSTRUAL DISORDER
     Dosage: UNK
     Dates: start: 20070601, end: 20090301
  2. TRI-PREVIFEM [Concomitant]
     Dosage: UNK
     Dates: start: 20080725
  3. TRAMADOL HCL [Concomitant]
     Dosage: UNK
     Dates: start: 20080918
  4. YAZ [Suspect]
     Indication: CONTRACEPTION
  5. GABAPENTIN [Concomitant]
     Dosage: UNK
     Dates: start: 20080918

REACTIONS (10)
  - BILIARY COLIC [None]
  - INJURY [None]
  - PHARYNGITIS STREPTOCOCCAL [None]
  - PAIN [None]
  - BASEDOW'S DISEASE [None]
  - GALLBLADDER DISORDER [None]
  - ANXIETY [None]
  - SUBARACHNOID HAEMORRHAGE [None]
  - MENINGITIS [None]
  - DEFORMITY [None]
